FAERS Safety Report 20854956 (Version 1)
Quarter: 2022Q2

REPORT INFORMATION
  Report Type: Spontaneous
  Country: JP (occurrence: JP)
  Receive Date: 20220520
  Receipt Date: 20220520
  Transmission Date: 20220721
  Serious: Yes (Hospitalization, Other)
  Sender: FDA-Public Use
  Company Number: JP-ELI_LILLY_AND_COMPANY-JP202205004043

PATIENT
  Age: 72 Year
  Sex: Male
  Weight: 48 kg

DRUGS (3)
  1. CYRAMZA [Suspect]
     Active Substance: RAMUCIRUMAB
     Indication: Gastric cancer stage IV
     Dosage: 500 MG, CYCLICAL
     Route: 041
     Dates: start: 20200806, end: 20200806
  2. PACLITAXEL [Concomitant]
     Active Substance: PACLITAXEL
     Indication: Gastric cancer stage IV
     Dosage: 130 MG, CYCLICAL
     Route: 041
     Dates: start: 20200806, end: 20200819
  3. ORGADRONE [DEXAMETHASONE SODIUM PHOSPHATE] [Concomitant]
     Indication: Prophylaxis of nausea and vomiting
     Dosage: 7.6 MG, DAILY
     Route: 041
     Dates: start: 20200806, end: 20200819

REACTIONS (2)
  - Peritonitis [Recovered/Resolved]
  - White blood cell count decreased [Recovering/Resolving]

NARRATIVE: CASE EVENT DATE: 20200821
